FAERS Safety Report 14985640 (Version 2)
Quarter: 2018Q3

REPORT INFORMATION
  Report Type: Spontaneous
  Country: US (occurrence: US)
  Receive Date: 20180607
  Receipt Date: 20180705
  Transmission Date: 20181010
  Serious: No
  Sender: FDA-Public Use
  Company Number: US-SUNOVION-2018SUN002320

PATIENT
  Age: 74 Year
  Sex: Female
  Weight: 68.93 kg

DRUGS (18)
  1. LONHALA MAGNAIR [Suspect]
     Active Substance: GLYCOPYRROLATE
     Indication: SARCOIDOSIS
     Dosage: 25 MCG/1ML BID
     Route: 055
     Dates: start: 20180501
  2. BUDESONIDE. [Concomitant]
     Active Substance: BUDESONIDE
     Dosage: 0.25 IS, BID
  3. PLAVIX [Concomitant]
     Active Substance: CLOPIDOGREL BISULFATE
     Indication: ANTICOAGULANT THERAPY
     Dosage: 75 MG, QD
     Route: 048
  4. ALBUTEROL. [Concomitant]
     Active Substance: ALBUTEROL
     Dosage: UNK, AS NECESSARY
     Route: 055
  5. PROAIR HFA [Concomitant]
     Active Substance: ALBUTEROL SULFATE
     Dosage: UNK
  6. ALBUTEROL. [Concomitant]
     Active Substance: ALBUTEROL
     Dosage: 2 PUFFS, AS NECESSARY
     Route: 055
  7. NITROGLYCERIN. [Concomitant]
     Active Substance: NITROGLYCERIN
     Indication: CHEST PAIN
     Dosage: 0.4 DF, AS NECESSARY
  8. BROVANA [Concomitant]
     Active Substance: ARFORMOTEROL TARTRATE
     Indication: LUNG DISORDER
     Dosage: 15MCG/2ML, BID
     Route: 055
  9. METOPROLOL. [Concomitant]
     Active Substance: METOPROLOL
     Indication: BLOOD PRESSURE MEASUREMENT
     Dosage: 25 MG, BID
     Route: 048
  10. FUROSEMIDE. [Concomitant]
     Active Substance: FUROSEMIDE
     Indication: DIURETIC THERAPY
     Dosage: 20 MG, QD
     Route: 048
  11. NEXIUM [Concomitant]
     Active Substance: ESOMEPRAZOLE MAGNESIUM
     Indication: GASTROOESOPHAGEAL REFLUX DISEASE
     Dosage: UNK
  12. XANAX [Concomitant]
     Active Substance: ALPRAZOLAM
     Indication: ANXIETY
     Dosage: 0.5 MG, TID/AS NEEDED
     Route: 048
     Dates: start: 2003
  13. ATORVASTATIN [Concomitant]
     Active Substance: ATORVASTATIN
     Indication: BLOOD CHOLESTEROL
     Dosage: 10 MG, QD
     Route: 048
  14. GABAPENTIN. [Concomitant]
     Active Substance: GABAPENTIN
     Indication: NEUROPATHY PERIPHERAL
     Dosage: 100 MG, TID
     Route: 048
  15. ALLERGAMINE [Concomitant]
     Indication: HYPERSENSITIVITY
     Dosage: UNK
  16. XANAX [Concomitant]
     Active Substance: ALPRAZOLAM
     Indication: HEART RATE INCREASED
  17. DILTIAZEM. [Concomitant]
     Active Substance: DILTIAZEM
     Indication: BLOOD PRESSURE MEASUREMENT
     Dosage: 60 MG, BID
     Route: 048
  18. OXYGEN. [Concomitant]
     Active Substance: OXYGEN
     Dosage: 2 L, CONTINUOUS FLOW
     Route: 055

REACTIONS (5)
  - Memory impairment [Unknown]
  - Wheezing [Not Recovered/Not Resolved]
  - Dyspnoea [Not Recovered/Not Resolved]
  - Cough [Recovered/Resolved]
  - Off label use [Unknown]

NARRATIVE: CASE EVENT DATE: 20180501
